FAERS Safety Report 7902537-7 (Version None)
Quarter: 2011Q4

REPORT INFORMATION
  Report Type: 
  Country: None (occurrence: None)
  Receive Date: 20111108
  Receipt Date: 20111026
  Transmission Date: 20120403
  Serious: Yes (Hospitalization, Other)
  Sender: FDA-Public Use
  Company Number: US-ELI_LILLY_AND_COMPANY-US201104002441

PATIENT
  Sex: Female
  Weight: 59 kg

DRUGS (10)
  1. FORTEO [Suspect]
     Dosage: 20 UG, QD
     Route: 058
  2. SIMVASTATIN [Concomitant]
     Indication: BLOOD CHOLESTEROL
     Dosage: 20 MG, OTHER
  3. LEXAPRO [Concomitant]
     Indication: DEPRESSION
     Dosage: 20 MG, QD
  4. FORTEO [Suspect]
     Dosage: 20 UG, QD
     Route: 058
  5. CALCIUM [Concomitant]
  6. FORTEO [Suspect]
     Dosage: 20 UG, QD
     Route: 058
  7. NUCYNTA [Concomitant]
     Indication: BACK PAIN
     Dosage: 100 MG, EVERY 4 HRS
  8. VITAMIN D [Concomitant]
  9. FORTEO [Suspect]
     Indication: OSTEOPOROSIS
     Dosage: 20 UG, QD
     Route: 058
     Dates: start: 20101129
  10. LYRICA [Concomitant]
     Indication: FIBROMYALGIA
     Dosage: 30 MG, OTHER

REACTIONS (14)
  - FATIGUE [None]
  - MALAISE [None]
  - PATIENT-DEVICE INCOMPATIBILITY [None]
  - DEPRESSION [None]
  - HYPERTENSION [None]
  - CONFUSIONAL STATE [None]
  - MEMORY IMPAIRMENT [None]
  - JOINT SWELLING [None]
  - CEREBROVASCULAR ACCIDENT [None]
  - INJECTION SITE PAIN [None]
  - SPEECH DISORDER [None]
  - DEHYDRATION [None]
  - FALL [None]
  - FIBROMYALGIA [None]
